FAERS Safety Report 9695664 (Version 1)
Quarter: 2013Q4

REPORT INFORMATION
  Report Type: Spontaneous
  Country: US (occurrence: US)
  Receive Date: 20131119
  Receipt Date: 20131119
  Transmission Date: 20140711
  Serious: Yes (Hospitalization)
  Sender: FDA-Public Use
  Company Number: US-PFIZER INC-2013326305

PATIENT
  Age: 49 Year
  Sex: Female

DRUGS (3)
  1. CRIZOTINIB [Suspect]
     Indication: LUNG NEOPLASM MALIGNANT
     Dosage: UNK
     Dates: start: 20130818, end: 20131111
  2. MORPHINE [Concomitant]
     Indication: PAIN
     Dosage: UNK
  3. COLACE [Concomitant]
     Dosage: UNK

REACTIONS (1)
  - Nephropathy toxic [Unknown]
